FAERS Safety Report 5728504-X (Version None)
Quarter: 2008Q2

REPORT INFORMATION
  Report Type: 
  Country: None (occurrence: None)
  Receive Date: 20080506
  Receipt Date: 20080423
  Transmission Date: 20081010
  Serious: Yes (Other)
  Sender: FDA-Public Use
  Company Number: DE-AMGEN-UK272450

PATIENT
  Sex: Male
  Weight: 83 kg

DRUGS (17)
  1. ARANESP [Suspect]
     Indication: RENAL FAILURE CHRONIC
     Route: 042
     Dates: start: 20080202, end: 20080331
  2. ARANESP [Suspect]
     Route: 042
     Dates: start: 20061201, end: 20070326
  3. ARANESP [Suspect]
     Route: 042
     Dates: start: 20070327, end: 20071020
  4. NESPO [Suspect]
     Route: 065
  5. ACTRAPHANE HM [Concomitant]
     Route: 058
  6. ASPIRIN [Concomitant]
     Route: 065
  7. METOPROLOL TARTRATE [Concomitant]
     Route: 065
  8. CALCIUM ACETATE [Concomitant]
     Route: 065
  9. FERRLECIT [Concomitant]
     Route: 065
  10. L-THYROXIN [Concomitant]
     Route: 065
  11. OMEPRAZOLE [Concomitant]
     Route: 065
  12. RENAGEL [Concomitant]
     Route: 065
  13. WHOLE BLOOD [Concomitant]
     Route: 065
     Dates: start: 20070913
  14. DYNEPO [Concomitant]
     Route: 042
     Dates: start: 20071023, end: 20080131
  15. PANTOPRAZOLE SODIUM [Concomitant]
     Route: 065
  16. ROCALTROL [Concomitant]
     Route: 065
  17. NULYTELY [Concomitant]
     Route: 065

REACTIONS (2)
  - APLASIA PURE RED CELL [None]
  - NEPHROGENIC ANAEMIA [None]
